FAERS Safety Report 21676421 (Version 1)
Quarter: 2022Q4

REPORT INFORMATION
  Report Type: Report from Study
  Country: US (occurrence: US)
  Receive Date: 20221202
  Receipt Date: 20221202
  Transmission Date: 20230113
  Serious: No
  Sender: FDA-Public Use
  Company Number: US-ABBVIE-4171315

PATIENT
  Sex: Male

DRUGS (4)
  1. HUMIRA [Suspect]
     Active Substance: ADALIMUMAB
     Indication: Psoriasis
     Route: 058
  2. Pfizer/BioNTech [Concomitant]
     Indication: COVID-19 immunisation
     Dosage: 1ST DOSE, ADMINISTERED ONCE
     Route: 030
     Dates: start: 20210311, end: 20210311
  3. Pfizer/BioNTech [Concomitant]
     Indication: COVID-19 immunisation
     Dosage: 2ND DOSE, ADMINISTERED ONCE
     Route: 030
     Dates: start: 20210325, end: 20210325
  4. Pfizer/BioNTech [Concomitant]
     Indication: COVID-19 immunisation
     Dosage: 3RD DOSE/BOOSTER, ADMINISTERED ONCE
     Route: 030
     Dates: start: 202110, end: 202010

REACTIONS (1)
  - Symptom recurrence [Not Recovered/Not Resolved]
